FAERS Safety Report 15157244 (Version 2)
Quarter: 2018Q4

REPORT INFORMATION
  Report Type: Spontaneous
  Country: GB (occurrence: GB)
  Receive Date: 20180718
  Receipt Date: 20181005
  Transmission Date: 20190204
  Serious: Yes (Disabling, Other)
  Sender: FDA-Public Use
  Company Number: GB-TEVA-2018-GB-927976

PATIENT
  Age: 23 Year
  Sex: Female
  Weight: 64 kg

DRUGS (2)
  1. DEPO-PROVERA [Concomitant]
     Active Substance: MEDROXYPROGESTERONE ACETATE
     Dosage: USE AS DIRECTED.
     Route: 065
     Dates: start: 20180329
  2. TRIMETHOPRIM TABLETS 100 MG [Suspect]
     Active Substance: TRIMETHOPRIM
     Route: 065
     Dates: start: 20180611

REACTIONS (1)
  - Scleritis [Unknown]

NARRATIVE: CASE EVENT DATE: 20180611
